FAERS Safety Report 4632899-8 (Version None)
Quarter: 2005Q2

REPORT INFORMATION
  Report Type: 
  Country: None (occurrence: None)
  Receive Date: 20050325
  Receipt Date: 20041223
  Transmission Date: 20051028
  Serious: No
  Sender: FDA-Public Use
  Company Number: USA031254533

PATIENT
  Age: 83 Year
  Sex: Female
  Weight: 48 kg

DRUGS (2)
  1. FORTEO [Suspect]
     Indication: OSTEOPOROSIS
     Dosage: 20 UG/1 DAY
     Dates: start: 20031208
  2. ATENOLOL [Concomitant]

REACTIONS (15)
  - ABDOMINAL PAIN UPPER [None]
  - ABDOMINAL RIGIDITY [None]
  - ARTHRALGIA [None]
  - BONE PAIN [None]
  - CONSTIPATION [None]
  - FEELING ABNORMAL [None]
  - FLATULENCE [None]
  - GASTROINTESTINAL DISORDER [None]
  - HEADACHE [None]
  - INJECTION SITE ERYTHEMA [None]
  - OEDEMA PERIPHERAL [None]
  - PRURITUS [None]
  - RASH [None]
  - RASH GENERALISED [None]
  - URTICARIA [None]
